FAERS Safety Report 10156824 (Version 1)
Quarter: 2014Q2

REPORT INFORMATION
  Report Type: Spontaneous
  Country: US (occurrence: US)
  Receive Date: 20140507
  Receipt Date: 20140507
  Transmission Date: 20141212
  Serious: No
  Sender: FDA-Public Use
  Company Number: US-BAYER-2014-067159

PATIENT
  Age: 83 Year
  Sex: Male
  Weight: 78.01 kg

DRUGS (2)
  1. ALEVE GELCAPS [Suspect]
     Indication: BACK PAIN
     Dosage: 1 DF, BID
     Route: 048
     Dates: start: 201404
  2. VITAMIN E [Concomitant]

REACTIONS (1)
  - Incorrect drug administration duration [None]
